FAERS Safety Report 21266318 (Version 3)
Quarter: 2022Q4

REPORT INFORMATION
  Report Type: Spontaneous
  Country: US (occurrence: US)
  Receive Date: 20220829
  Receipt Date: 20221230
  Transmission Date: 20230112
  Serious: No
  Sender: FDA-Public Use
  Company Number: US-BRISTOL-MYERS SQUIBB COMPANY-2022-097441

PATIENT
  Age: 63 Year
  Sex: Female

DRUGS (1)
  1. REVLIMID [Suspect]
     Active Substance: LENALIDOMIDE
     Indication: Plasma cell myeloma
     Route: 048
     Dates: start: 20220804

REACTIONS (6)
  - Muscle spasms [Unknown]
  - Abdominal pain [Unknown]
  - Nausea [Unknown]
  - Hyperhidrosis [Unknown]
  - Vomiting [Unknown]
  - Malaise [Unknown]

NARRATIVE: CASE EVENT DATE: 20220812
